FAERS Safety Report 4868167-9 (Version None)
Quarter: 2005Q4

REPORT INFORMATION
  Report Type: 
  Country: None (occurrence: None)
  Receive Date: 20051229
  Receipt Date: 20051221
  Transmission Date: 20060501
  Serious: Yes (Hospitalization, Other)
  Sender: FDA-Public Use
  Company Number: US-JNJFOC-20050904808

PATIENT
  Sex: Male
  Weight: 86.18 kg

DRUGS (5)
  1. RISPERDAL [Suspect]
     Indication: BIPOLAR DISORDER
     Route: 048
     Dates: start: 20050901
  2. RISPERDAL [Suspect]
     Indication: SCHIZOPHRENIA
     Route: 048
     Dates: start: 20050901
  3. DEPAKOTE [Concomitant]
     Indication: BIPOLAR DISORDER
     Dosage: (500 MG EVERY MORNING AND 1000 MG AT BEDTIME)
  4. DILTIAZEM HCL [Concomitant]
  5. COCAINE [Concomitant]

REACTIONS (3)
  - ATRIOVENTRICULAR BLOCK FIRST DEGREE [None]
  - ELECTROCARDIOGRAM QT PROLONGED [None]
  - RHABDOMYOLYSIS [None]
